FAERS Safety Report 13147414 (Version 2)
Quarter: 2017Q2

REPORT INFORMATION
  Report Type: Spontaneous
  Country: US (occurrence: US)
  Receive Date: 20170125
  Receipt Date: 20170623
  Transmission Date: 20170830
  Serious: No
  Sender: FDA-Public Use
  Company Number: US-JNJFOC-20170121267

PATIENT
  Sex: Male
  Weight: 97.52 kg

DRUGS (2)
  1. INVOKAMET XR [Suspect]
     Active Substance: CANAGLIFLOZIN\METFORMIN HYDROCHLORIDE
     Indication: DIABETES MELLITUS
     Dosage: DOSE: 50/100 MG
     Route: 048
     Dates: start: 201701
  2. TENELIGLIPTIN [Concomitant]
     Active Substance: TENELIGLIPTIN
     Route: 048
     Dates: start: 201701

REACTIONS (6)
  - General physical condition abnormal [Not Recovered/Not Resolved]
  - Anxiety [Not Recovered/Not Resolved]
  - Gastrointestinal disorder [Not Recovered/Not Resolved]
  - Weight decreased [Not Recovered/Not Resolved]
  - Anorectal disorder [Not Recovered/Not Resolved]
  - Blood glucose abnormal [Not Recovered/Not Resolved]

NARRATIVE: CASE EVENT DATE: 2017
